FAERS Safety Report 15913138 (Version 2)
Quarter: 2020Q1

REPORT INFORMATION
  Report Type: Spontaneous
  Country: US (occurrence: US)
  Receive Date: 20190204
  Receipt Date: 20200206
  Transmission Date: 20200409
  Serious: Yes (Other)
  Sender: FDA-Public Use
  Company Number: US-ABBVIE-18K-163-2498190-00

PATIENT
  Sex: Female

DRUGS (1)
  1. HUMIRA [Suspect]
     Active Substance: ADALIMUMAB
     Indication: RHEUMATOID ARTHRITIS
     Route: 058

REACTIONS (9)
  - Raynaud^s phenomenon [Unknown]
  - Fibromyalgia [Unknown]
  - Sleep disorder [Recovering/Resolving]
  - Procedural pain [Recovered/Resolved]
  - Osteoarthritis [Unknown]
  - Sjogren^s syndrome [Unknown]
  - Knee arthroplasty [Unknown]
  - Balance disorder [Recovering/Resolving]
  - Arthritis [Unknown]

NARRATIVE: CASE EVENT DATE: 2018
